FAERS Safety Report 16251497 (Version 1)
Quarter: 2019Q2

REPORT INFORMATION
  Report Type: Spontaneous
  Country: US (occurrence: US)
  Receive Date: 20190427
  Receipt Date: 20190427
  Transmission Date: 20190711
  Serious: Yes (Hospitalization, Other)
  Sender: FDA-Public Use
  Company Number: None

PATIENT
  Age: 3 Year
  Sex: Female
  Weight: 16.2 kg

DRUGS (1)
  1. MEIJER CHOCOLATED LAXATIVE [Suspect]
     Active Substance: SENNOSIDES
     Indication: CONSTIPATION
     Dosage: ?          QUANTITY:1 CHOCOLATE PIECE;?
     Route: 048
     Dates: start: 20190313, end: 20190425

REACTIONS (7)
  - Chemical burn [None]
  - Blister [None]
  - Skin exfoliation [None]
  - Skin injury [None]
  - Vulval disorder [None]
  - Diarrhoea [None]
  - Anal incontinence [None]

NARRATIVE: CASE EVENT DATE: 20190426
